FAERS Safety Report 20251071 (Version 1)
Quarter: 2021Q4

REPORT INFORMATION
  Report Type: Spontaneous
  Country: US (occurrence: US)
  Receive Date: 20211229
  Receipt Date: 20211229
  Transmission Date: 20220303
  Serious: No
  Sender: FDA-Public Use
  Company Number: US-CLOVIS ONCOLOGY-CLO-2021-000704

PATIENT
  Age: 72 Year
  Sex: Female

DRUGS (2)
  1. RUBRACA [Suspect]
     Active Substance: RUCAPARIB CAMSYLATE
     Indication: Ovarian cancer
     Dosage: 600 MILLIGRAM, BID
     Route: 048
     Dates: start: 201905
  2. KANK-A MOUTH PAIN [Suspect]
     Active Substance: BENZOCAINE
     Indication: Aphthous ulcer

REACTIONS (4)
  - Oral pain [Unknown]
  - Speech disorder [Unknown]
  - Hypoaesthesia oral [Unknown]
  - Aphthous ulcer [Not Recovered/Not Resolved]

NARRATIVE: CASE EVENT DATE: 20210401
